FAERS Safety Report 20032517 (Version 1)
Quarter: 2021Q4

REPORT INFORMATION
  Report Type: Spontaneous
  Country: US (occurrence: US)
  Receive Date: 20211103
  Receipt Date: 20211103
  Transmission Date: 20220303
  Serious: No
  Sender: FDA-Public Use
  Company Number: US-009507513-2110USA005215

PATIENT
  Sex: Male

DRUGS (13)
  1. NOXAFIL [Suspect]
     Active Substance: POSACONAZOLE
     Route: 048
  2. VENCLEXTA [Suspect]
     Active Substance: VENETOCLAX
  3. GLUCOPHAGE [Concomitant]
     Active Substance: METFORMIN HYDROCHLORIDE
  4. LIPITOR [Concomitant]
     Active Substance: ATORVASTATIN CALCIUM
  5. PLAVIX [Concomitant]
     Active Substance: CLOPIDOGREL BISULFATE
  6. CORGARD [Concomitant]
     Active Substance: NADOLOL
  7. NITROSTAT [Concomitant]
     Active Substance: NITROGLYCERIN
  8. ASPIRIN [Concomitant]
     Active Substance: ASPIRIN
  9. Q-10 CO-ENZYME [Concomitant]
  10. VITAMIN C [Concomitant]
     Active Substance: ASCORBIC ACID
  11. TYLENOL [Concomitant]
     Active Substance: ACETAMINOPHEN
  12. FLAXSEED [Concomitant]
     Active Substance: FLAX SEED
  13. LINSEED [LINUM USITATISSIMUM SEED] [Concomitant]

REACTIONS (1)
  - Drug interaction [Unknown]
